FAERS Safety Report 11023027 (Version 2)
Quarter: 2015Q2

REPORT INFORMATION
  Report Type: Spontaneous
  Country: US (occurrence: US)
  Receive Date: 20150413
  Receipt Date: 20150413
  Transmission Date: 20150821
  Serious: No
  Sender: FDA-Public Use
  Company Number: US-ASTELLAS-2015US003503

PATIENT
  Age: 32 Year
  Sex: Male

DRUGS (5)
  1. CETAPHIL                           /00498501/ [Concomitant]
     Indication: PRODUCT USED FOR UNKNOWN INDICATION
     Dosage: UNK UNK, UNKNOWN FREQ.
     Route: 065
     Dates: start: 20150119
  2. TACROLIMUS OINTMENT [Suspect]
     Active Substance: TACROLIMUS
     Indication: SEBORRHOEIC DERMATITIS
     Dosage: UNK DIMED SIZE AMOUNT, TWICE DAILY
     Route: 061
     Dates: start: 20150122, end: 20150126
  3. CICLOPIROX. [Concomitant]
     Active Substance: CICLOPIROX
     Indication: PRODUCT USED FOR UNKNOWN INDICATION
     Dosage: 0.1 %, UNKNOWN FREQ.
     Route: 065
     Dates: start: 20150119
  4. NEUTROGENA T [Concomitant]
     Indication: PRODUCT USED FOR UNKNOWN INDICATION
     Dosage: UNK UNK, UNKNOWN FREQ.
     Route: 065
     Dates: start: 20150119
  5. FISH OIL [Concomitant]
     Active Substance: FISH OIL
     Indication: PRODUCT USED FOR UNKNOWN INDICATION
     Dosage: UNK UNK, UNKNOWN FREQ.
     Route: 065

REACTIONS (1)
  - Condition aggravated [Recovered/Resolved]

NARRATIVE: CASE EVENT DATE: 20150125
